FAERS Safety Report 7052399-8 (Version None)
Quarter: 2010Q4

REPORT INFORMATION
  Report Type: 
  Country: None (occurrence: None)
  Receive Date: 20101019
  Receipt Date: 20101006
  Transmission Date: 20110411
  Serious: Yes (Other)
  Sender: FDA-Public Use
  Company Number: PHHY2009NL49768

PATIENT
  Sex: Female

DRUGS (2)
  1. TASIGNA [Suspect]
     Indication: CHRONIC MYELOID LEUKAEMIA
  2. CHOLESTEROL- AND TRIGLYCERIDE REDUCERS [Suspect]
     Dosage: UNK

REACTIONS (26)
  - ABDOMINAL DISTENSION [None]
  - ABNORMAL FAECES [None]
  - ARTHRALGIA [None]
  - ASTHENIA [None]
  - BLOOD CHOLESTEROL INCREASED [None]
  - BREAST DISCOMFORT [None]
  - CHEST DISCOMFORT [None]
  - DECREASED APPETITE [None]
  - DERMATITIS [None]
  - DIARRHOEA [None]
  - DISTURBANCE IN ATTENTION [None]
  - DRUG ADMINISTRATION ERROR [None]
  - DRY SKIN [None]
  - FACIAL PAIN [None]
  - FATIGUE [None]
  - FEELING ABNORMAL [None]
  - FEELING COLD [None]
  - FLUID RETENTION [None]
  - MALAISE [None]
  - MIGRAINE [None]
  - MUSCLE DISORDER [None]
  - MYALGIA [None]
  - NAUSEA [None]
  - VOMITING [None]
  - WEIGHT DECREASED [None]
  - WOUND [None]
